FAERS Safety Report 8071905-8 (Version None)
Quarter: 2012Q1

REPORT INFORMATION
  Report Type: 
  Country: None (occurrence: None)
  Receive Date: 20120119
  Receipt Date: 20111115
  Transmission Date: 20120608
  Serious: Yes (Life-Threatening, Hospitalization)
  Sender: FDA-Public Use
  Company Number: 2010-2979

PATIENT
  Age: 42 Year
  Sex: Male
  Weight: 122 kg

DRUGS (1)
  1. LANREOTIDE ATG 120MG (LANREOTIDE AUTOGEL) (LANREOTIDE) (LANREOTIDE ACE [Suspect]
     Indication: ADENOMA BENIGN
     Dosage: 120 MG (120 MG, 1 IN 4 WK), SUBCUTANEOUS
     Route: 058
     Dates: start: 20100429, end: 20100823

REACTIONS (1)
  - INTRACRANIAL HYPOTENSION [None]
